FAERS Safety Report 4278123-X (Version None)
Quarter: 2004Q1

REPORT INFORMATION
  Report Type: 
  Country: None (occurrence: None)
  Receive Date: 20040123
  Receipt Date: 20020527
  Transmission Date: 20041129
  Serious: Yes (Other)
  Sender: FDA-Public Use
  Company Number: WAES 0205GBR00194

PATIENT
  Age: 59 Year
  Sex: Male

DRUGS (10)
  1. AZITHROMYCIN [Concomitant]
  2. CALCIUM CARBONATE AND CHOLECALCIFEROL [Concomitant]
  3. CHLORAMPHENICOL [Concomitant]
  4. CLARITHROMYCIN [Concomitant]
     Indication: INFECTION
  5. DOXYCYCLINE [Concomitant]
  6. DOXYCYCLINE [Concomitant]
  7. LANSOPRAZOLE [Concomitant]
  8. METRONIDAZOLE [Concomitant]
  9. VIOXX [Suspect]
     Indication: MUSCULOSKELETAL PAIN
     Route: 048
     Dates: end: 20020801
  10. TAMSULOSIN HYDROCHLORIDE [Concomitant]

REACTIONS (2)
  - BLINDNESS TRANSIENT [None]
  - VISUAL ACUITY REDUCED [None]
